FAERS Safety Report 6785433-0 (Version None)
Quarter: 2010Q2

REPORT INFORMATION
  Report Type: 
  Country: None (occurrence: None)
  Receive Date: 20100623
  Receipt Date: 20100615
  Transmission Date: 20101027
  Serious: No
  Sender: FDA-Public Use
  Company Number: US-BIOGENIDEC-2010BI020371

PATIENT
  Age: 52 Year
  Sex: Female

DRUGS (2)
  1. TYSABRI [Suspect]
     Indication: MULTIPLE SCLEROSIS
     Route: 042
     Dates: start: 20070827, end: 20080807
  2. TYSABRI [Suspect]
     Route: 042
     Dates: start: 20090925

REACTIONS (3)
  - ABDOMINAL DISCOMFORT [None]
  - MULTIPLE SCLEROSIS RELAPSE [None]
  - NAUSEA [None]
